FAERS Safety Report 10229345 (Version 2)
Quarter: 2014Q2

REPORT INFORMATION
  Report Type: Spontaneous
  Country: CA (occurrence: CA)
  Receive Date: 20140611
  Receipt Date: 20140613
  Transmission Date: 20141212
  Serious: Yes (Death)
  Sender: FDA-Public Use
  Company Number: CA-009507513-1406CAN002326

PATIENT
  Age: 62 Year
  Sex: Male

DRUGS (2)
  1. TEMODAL [Suspect]
     Indication: GLIOBLASTOMA MULTIFORME
     Dosage: UNK
     Route: 048
     Dates: start: 20140304, end: 20140419
  2. TEMODAL [Suspect]
     Dosage: UNK
     Route: 048
     Dates: start: 20140519, end: 20140523

REACTIONS (1)
  - Death [Fatal]
